FAERS Safety Report 8025226-X (Version None)
Quarter: 2012Q1

REPORT INFORMATION
  Report Type: 
  Country: None (occurrence: None)
  Receive Date: 20120105
  Receipt Date: 20111222
  Transmission Date: 20120608
  Serious: Yes (Death)
  Sender: FDA-Public Use
  Company Number: ES-ROCHE-1025703

PATIENT
  Age: 54 Year
  Sex: Male
  Weight: 90 kg

DRUGS (12)
  1. MIDAZOLAM [Concomitant]
     Route: 042
     Dates: start: 20101227, end: 20110104
  2. ENOXAPARIN [Concomitant]
     Route: 058
     Dates: start: 20101227, end: 20110104
  3. TAMIFLU [Suspect]
  4. INSULIN [Concomitant]
     Route: 042
     Dates: start: 20101227, end: 20110104
  5. OMEPRAZOLE [Concomitant]
     Route: 042
     Dates: start: 20101227, end: 20110104
  6. ACETAMINOPHEN [Concomitant]
     Route: 042
     Dates: start: 20101227, end: 20110104
  7. CEFTRIAXONE [Concomitant]
     Route: 042
     Dates: start: 20101227, end: 20110104
  8. TAMIFLU [Suspect]
     Indication: INFLUENZA
     Route: 042
     Dates: start: 20101227
  9. DOPAMINE HCL [Concomitant]
     Route: 042
     Dates: start: 20101227, end: 20110104
  10. AZITHROMYCIN [Concomitant]
     Route: 042
     Dates: start: 20101227, end: 20110104
  11. FUROSEMIDE [Concomitant]
     Route: 042
     Dates: start: 20101227, end: 20110104
  12. MORPHINE [Concomitant]
     Route: 042
     Dates: start: 20101227, end: 20110104

REACTIONS (1)
  - INFLUENZA [None]
